FAERS Safety Report 4736170-5 (Version None)
Quarter: 2005Q3

REPORT INFORMATION
  Report Type: 
  Country: None (occurrence: None)
  Receive Date: 20050728
  Receipt Date: 20050601
  Transmission Date: 20060218
  Serious: Yes (Hospitalization, Disabling)
  Sender: FDA-Public Use
  Company Number: 200514214US

PATIENT
  Age: 20 Year
  Sex: Female
  Weight: 50 kg

DRUGS (3)
  1. KETEK [Suspect]
     Indication: CHRONIC SINUSITIS
     Dosage: 800 MG ONCE PO
     Route: 048
     Dates: start: 20050513, end: 20050513
  2. ZOLOFT [Concomitant]
  3. MONTELUKAST SODIUM [Concomitant]

REACTIONS (3)
  - EYE PAIN [None]
  - VISION BLURRED [None]
  - VISUAL DISTURBANCE [None]
